FAERS Safety Report 13616317 (Version 1)
Quarter: 2017Q2

REPORT INFORMATION
  Report Type: Spontaneous
  Country: US (occurrence: US)
  Receive Date: 20170606
  Receipt Date: 20170606
  Transmission Date: 20170830
  Serious: No
  Sender: FDA-Public Use
  Company Number: None

PATIENT
  Age: 74 Year
  Sex: Female
  Weight: 73.94 kg

DRUGS (6)
  1. QVAR [Suspect]
     Active Substance: BECLOMETHASONE DIPROPIONATE
     Indication: ASTHMA
     Dosage: QUANITY - 1 PUFF 8 OTHER A.M.?FREQUENCY - 8 OTHER DAY
     Route: 048
     Dates: start: 201208, end: 20170429
  2. ALBUTEROL INHALER [Concomitant]
     Active Substance: ALBUTEROL
  3. METOPROLOL. [Concomitant]
     Active Substance: METOPROLOL
  4. VITAMIN D [Concomitant]
     Active Substance: CHOLECALCIFEROL
  5. AXID [Concomitant]
     Active Substance: NIZATIDINE
  6. POTASSIUM [Concomitant]
     Active Substance: POTASSIUM

REACTIONS (1)
  - Alopecia [None]

NARRATIVE: CASE EVENT DATE: 20170101
